FAERS Safety Report 16695871 (Version 1)
Quarter: 2019Q3

REPORT INFORMATION
  Report Type: Report from Study
  Country: US (occurrence: US)
  Receive Date: 20190813
  Receipt Date: 20190813
  Transmission Date: 20191004
  Serious: Yes (Disabling)
  Sender: FDA-Public Use
  Company Number: US-AMGEN-USASL2019122720

PATIENT
  Age: 18 Year
  Sex: Female
  Weight: 102.49 kg

DRUGS (3)
  1. ENBREL [Suspect]
     Active Substance: ETANERCEPT
     Indication: PSORIASIS
     Dosage: UNK
     Route: 058
  2. ENBREL [Suspect]
     Active Substance: ETANERCEPT
     Dosage: 50 MILLIGRAM, 2 TIMES/WK
     Route: 058
     Dates: start: 20190610, end: 20190729
  3. MEMANTINE. [Concomitant]
     Active Substance: MEMANTINE
     Indication: BEHAVIOUR DISORDER
     Dosage: 10 MILLIGRAM, QD
     Route: 065

REACTIONS (3)
  - Lethargy [Unknown]
  - Fatigue [Not Recovered/Not Resolved]
  - Somnolence [Unknown]

NARRATIVE: CASE EVENT DATE: 2019
